FAERS Safety Report 12389859 (Version 1)
Quarter: 2016Q2

REPORT INFORMATION
  Report Type: Spontaneous
  Country: US (occurrence: None)
  Receive Date: 20160510
  Receipt Date: 20160510
  Transmission Date: 20160815
  Serious: No
  Sender: FDA-Public Use
  Company Number: None

PATIENT
  Age: 35 Year
  Sex: Female
  Weight: 113.4 kg

DRUGS (11)
  1. LISINOPRIL. [Concomitant]
     Active Substance: LISINOPRIL
  2. IMITREX [Concomitant]
     Active Substance: SUMATRIPTAN SUCCINATE
  3. CONTRAVE [Suspect]
     Active Substance: BUPROPION HYDROCHLORIDE\NALTREXONE HYDROCHLORIDE
     Indication: WEIGHT CONTROL
     Route: 048
     Dates: start: 20160321, end: 20160407
  4. HYDROCHLOROTHIAZIDE. [Concomitant]
     Active Substance: HYDROCHLOROTHIAZIDE
  5. CLARITIN [Concomitant]
     Active Substance: LORATADINE
  6. IBPROFEN [Concomitant]
  7. B-VITAMIN COMPLEX [Concomitant]
  8. ZOLOFT [Concomitant]
     Active Substance: SERTRALINE HYDROCHLORIDE
  9. XANAX [Concomitant]
     Active Substance: ALPRAZOLAM
  10. PHENTERMINE. [Concomitant]
     Active Substance: PHENTERMINE
  11. TIZANIDINE. [Concomitant]
     Active Substance: TIZANIDINE

REACTIONS (13)
  - Nausea [None]
  - Headache [None]
  - Dizziness [None]
  - Therapy cessation [None]
  - Agitation [None]
  - Vision blurred [None]
  - Constipation [None]
  - Mood swings [None]
  - Vomiting [None]
  - Head titubation [None]
  - Dyskinesia [None]
  - Diarrhoea [None]
  - Strabismus [None]

NARRATIVE: CASE EVENT DATE: 20160407
